FAERS Safety Report 15979396 (Version 1)
Quarter: 2019Q1

REPORT INFORMATION
  Report Type: Spontaneous
  Country: US (occurrence: US)
  Receive Date: 20190217
  Receipt Date: 20190217
  Transmission Date: 20190418
  Serious: Yes (Other)
  Sender: FDA-Public Use
  Company Number: None

PATIENT
  Age: 68 Year
  Sex: Female
  Weight: 72 kg

DRUGS (11)
  1. AMLODIPINE [Concomitant]
     Active Substance: AMLODIPINE BESYLATE
  2. POTASSIUM [Concomitant]
     Active Substance: POTASSIUM
  3. LISINOPRIL. [Concomitant]
     Active Substance: LISINOPRIL
  4. RANITIDINE. [Concomitant]
     Active Substance: RANITIDINE
  5. ASPIRIN. [Concomitant]
     Active Substance: ASPIRIN
  6. PRADAXA [Suspect]
     Active Substance: DABIGATRAN ETEXILATE MESYLATE
     Indication: THROMBOSIS PROPHYLAXIS
     Dosage: ?          QUANTITY:1 CAPSULE(S);?
     Route: 048
     Dates: start: 20190206, end: 20190211
  7. TAMSULOSIN [Concomitant]
     Active Substance: TAMSULOSIN
  8. ESTRACE [Concomitant]
     Active Substance: ESTRADIOL
  9. ALEVE [Concomitant]
     Active Substance: NAPROXEN SODIUM
  10. BISOPROLOL [Concomitant]
     Active Substance: BISOPROLOL
  11. ATORVASTATIN [Concomitant]
     Active Substance: ATORVASTATIN

REACTIONS (2)
  - Blood urine present [None]
  - Gingival bleeding [None]

NARRATIVE: CASE EVENT DATE: 20190206
